FAERS Safety Report 8080711-X (Version None)
Quarter: 2012Q1

REPORT INFORMATION
  Report Type: 
  Country: None (occurrence: None)
  Receive Date: 20120130
  Receipt Date: 20120120
  Transmission Date: 20120608
  Serious: Yes (Life-Threatening, Other)
  Sender: FDA-Public Use
  Company Number: US-JNJFOC-20111204640

PATIENT
  Sex: Female
  Weight: 71.67 kg

DRUGS (20)
  1. ALBUTEROL [Concomitant]
  2. SINGULAIR [Concomitant]
  3. BENADRYL [Concomitant]
  4. XARELTO [Suspect]
     Indication: PROPHYLAXIS
     Route: 048
     Dates: start: 20111206, end: 20111207
  5. DULCOLAX [Concomitant]
  6. ONDANSETRON HCL [Concomitant]
  7. AMBIEN [Concomitant]
  8. OXYCODONE HCL [Concomitant]
  9. FLONASE [Concomitant]
  10. ATROVENT [Concomitant]
  11. NITROFURANTOIN [Concomitant]
  12. OMEPRAZOLE [Concomitant]
  13. CLONAZEPAM [Concomitant]
  14. XARELTO [Suspect]
     Indication: THROMBOSIS PROPHYLAXIS
     Route: 048
     Dates: start: 20111206, end: 20111207
  15. XARELTO [Suspect]
     Indication: KNEE ARTHROPLASTY
     Route: 048
     Dates: start: 20111206, end: 20111207
  16. DILAUDID [Concomitant]
  17. REGLAN [Concomitant]
  18. ACETAMINOPHEN [Concomitant]
  19. ZOCOR [Concomitant]
  20. CELEBREX [Concomitant]

REACTIONS (3)
  - PULMONARY EMBOLISM [None]
  - DEEP VEIN THROMBOSIS [None]
  - PRODUCT QUALITY ISSUE [None]
